FAERS Safety Report 7968443-7 (Version None)
Quarter: 2011Q4

REPORT INFORMATION
  Report Type: 
  Country: None (occurrence: None)
  Receive Date: 20111209
  Receipt Date: 20111129
  Transmission Date: 20120403
  Serious: Yes (Other)
  Sender: FDA-Public Use
  Company Number: GB-BRISTOL-MYERS SQUIBB COMPANY-16261802

PATIENT

DRUGS (1)
  1. DASATINIB [Suspect]
     Dosage: INITIALLY 50 MG TWICE DAILY TO 100 MG ONCE DAILY.

REACTIONS (2)
  - ACCIDENTAL OVERDOSE [None]
  - DEMYELINATION [None]
